FAERS Safety Report 5597975-4 (Version None)
Quarter: 2008Q1

REPORT INFORMATION
  Report Type: 
  Country: None (occurrence: None)
  Receive Date: 20080116
  Receipt Date: 20080107
  Transmission Date: 20080703
  Serious: Yes (Life-Threatening, Hospitalization)
  Sender: FDA-Public Use
  Company Number: 2007-03299

PATIENT
  Age: 78 Year
  Sex: Male
  Weight: 71 kg

DRUGS (11)
  1. VELCADE [Suspect]
     Indication: MULTIPLE MYELOMA
     Dosage: 1.30 MG/M2, INTRAVENOUS
     Route: 042
     Dates: start: 20070925, end: 20070928
  2. GLYBURIDE [Concomitant]
  3. MARZULENE'S (LEVOGLUTAMIDE, SODIUM GUALENATE) [Concomitant]
  4. METHYCOBAL (MECOBALAMIN) [Concomitant]
  5. FAMOTIDINE [Concomitant]
  6. MAGNESIUM OXIDE (MAGNESIUM OXIDE) [Concomitant]
  7. KINEDAK (EPALRESTAT) [Concomitant]
  8. PERINDOPRIL ERBUMINE [Concomitant]
  9. BASEN (VOGLIBOSE) [Concomitant]
  10. NAUZELIN (DOMPERIDONE) [Concomitant]
  11. ALLOPURINOL [Concomitant]

REACTIONS (9)
  - BLOOD CREATININE INCREASED [None]
  - DIARRHOEA [None]
  - OEDEMA [None]
  - PLATELET COUNT DECREASED [None]
  - PNEUMONIA ASPIRATION [None]
  - PYREXIA [None]
  - RALES [None]
  - VOMITING [None]
  - WHITE BLOOD CELL COUNT DECREASED [None]
